FAERS Safety Report 9161089 (Version 1)
Quarter: 2013Q1

REPORT INFORMATION
  Report Type: Spontaneous
  Country: FR (occurrence: FR)
  Receive Date: 20130313
  Receipt Date: 20130313
  Transmission Date: 20140127
  Serious: Yes (Death, Life-Threatening, Hospitalization, Other)
  Sender: FDA-Public Use
  Company Number: FR-ROXANE LABORATORIES, INC.-2013-RO-00359RO

PATIENT
  Age: 58 Year
  Sex: Male

DRUGS (3)
  1. AZATHIOPRINE [Suspect]
     Indication: CROHN^S DISEASE
  2. CORTICOSTEROIDS [Suspect]
     Indication: CROHN^S DISEASE
  3. INFLIXIMAB [Suspect]
     Indication: CROHN^S DISEASE

REACTIONS (13)
  - Death [Fatal]
  - Bronchopulmonary aspergillosis [Unknown]
  - Systemic candida [Unknown]
  - Candida infection [Unknown]
  - Pneumocystis jirovecii pneumonia [Unknown]
  - Haemodynamic instability [Unknown]
  - Multi-organ failure [Unknown]
  - Hepatitis alcoholic [Unknown]
  - Hepatitis B [Unknown]
  - Hepatic cirrhosis [Unknown]
  - Sepsis [Unknown]
  - Septic shock [Unknown]
  - Bronchopulmonary disease [Unknown]
